FAERS Safety Report 18811280 (Version 2)
Quarter: 2021Q2

REPORT INFORMATION
  Report Type: Spontaneous
  Country: BR (occurrence: BR)
  Receive Date: 20210130
  Receipt Date: 20210419
  Transmission Date: 20210717
  Serious: Yes (Other)
  Sender: FDA-Public Use
  Company Number: BR-LUPIN PHARMACEUTICALS INC.-2021-00727

PATIENT
  Age: 30 Year
  Sex: Male

DRUGS (8)
  1. LITHIUM. [Suspect]
     Active Substance: LITHIUM
     Indication: DIGEORGE^S SYNDROME
  2. HALOPERIDOL. [Suspect]
     Active Substance: HALOPERIDOL
     Indication: DIGEORGE^S SYNDROME
     Dosage: UNK
     Route: 065
     Dates: start: 2017, end: 2018
  3. QUETIAPINE FUMARATE. [Suspect]
     Active Substance: QUETIAPINE FUMARATE
     Indication: ANXIETY DISORDER
     Dosage: UNK
     Route: 065
     Dates: end: 2018
  4. RISPERIDONE. [Suspect]
     Active Substance: RISPERIDONE
     Indication: ANXIETY DISORDER
     Dosage: UNK
     Route: 065
     Dates: end: 2018
  5. RISPERIDONE. [Suspect]
     Active Substance: RISPERIDONE
     Indication: DIGEORGE^S SYNDROME
  6. HALOPERIDOL. [Suspect]
     Active Substance: HALOPERIDOL
     Indication: ANXIETY DISORDER
  7. QUETIAPINE FUMARATE. [Suspect]
     Active Substance: QUETIAPINE FUMARATE
     Indication: DIGEORGE^S SYNDROME
  8. LITHIUM. [Suspect]
     Active Substance: LITHIUM
     Indication: ANXIETY DISORDER
     Dosage: UNK
     Route: 065
     Dates: start: 2017, end: 2018

REACTIONS (1)
  - Dystonia [Recovered/Resolved]

NARRATIVE: CASE EVENT DATE: 2017
